FAERS Safety Report 7712153-8 (Version None)
Quarter: 2011Q3

REPORT INFORMATION
  Report Type: 
  Country: None (occurrence: None)
  Receive Date: 20110822
  Receipt Date: 20110805
  Transmission Date: 20111222
  Serious: Yes (Death, Hospitalization, Other)
  Sender: FDA-Public Use
  Company Number: 2011MA011518

PATIENT
  Age: 85 Year
  Sex: Male
  Weight: 82.1011 kg

DRUGS (26)
  1. FUROSEMIDE [Concomitant]
  2. SOLIFENACIN SUCCINATE [Concomitant]
  3. MULTIPLE VITAMINS [Concomitant]
  4. MONTELUKAST SODIUM [Concomitant]
  5. NITRO-DUR [Concomitant]
  6. IMODIUM MULTI-SYMPTOM RELIEF [Concomitant]
  7. DOBUTREX [Concomitant]
  8. ADVAIR DISKUS 100/50 [Concomitant]
  9. TAMSULOSIN HCL [Concomitant]
  10. PROSCAR [Concomitant]
  11. COREG [Concomitant]
  12. COLCHICINE [Concomitant]
  13. METRONIDAZOLE [Concomitant]
  14. POTASSIUM [Concomitant]
  15. DOBUTAMINE HCL [Concomitant]
  16. DIGOXIN [Suspect]
     Dosage: .125 MG;QD;O
     Route: 048
     Dates: start: 20071012
  17. LANOXIN [Concomitant]
  18. XOPENEX [Concomitant]
  19. VASOTEC [Concomitant]
  20. POTASSIUM CHLORIDE [Concomitant]
  21. METOPROLOL TARTRATE [Concomitant]
  22. SPIRONOLACTONE [Concomitant]
  23. QUINAPRIL HCL [Concomitant]
  24. BUMEX [Concomitant]
  25. DOXAZOSIN MESYLATE [Concomitant]
  26. IPRATROPIUM BROMIDE [Concomitant]

REACTIONS (75)
  - ECONOMIC PROBLEM [None]
  - GENERAL PHYSICAL HEALTH DETERIORATION [None]
  - RENAL CYST [None]
  - PULMONARY EMBOLISM [None]
  - PLATELET COUNT DECREASED [None]
  - HYPOCHROMIC ANAEMIA [None]
  - BLOOD CHLORIDE DECREASED [None]
  - CORONARY ARTERY OCCLUSION [None]
  - BLADDER DISORDER [None]
  - CONDITION AGGRAVATED [None]
  - CARDIAC MURMUR [None]
  - PERICARDIAL EFFUSION [None]
  - ATRIAL FIBRILLATION [None]
  - HYPOVOLAEMIA [None]
  - METABOLIC ACIDOSIS [None]
  - RED BLOOD CELL SEDIMENTATION RATE INCREASED [None]
  - DEEP VEIN THROMBOSIS [None]
  - SOFT TISSUE MASS [None]
  - LOCALISED INTRAABDOMINAL FLUID COLLECTION [None]
  - EMOTIONAL DISORDER [None]
  - ANXIETY [None]
  - CARDIOMEGALY [None]
  - LOBAR PNEUMONIA [None]
  - SUPRAVENTRICULAR EXTRASYSTOLES [None]
  - BLOOD URIC ACID INCREASED [None]
  - ABDOMINAL DISTENSION [None]
  - WHITE BLOOD CELL COUNT INCREASED [None]
  - GAMMA-GLUTAMYLTRANSFERASE INCREASED [None]
  - DEMENTIA [None]
  - PYURIA [None]
  - HYDRONEPHROSIS [None]
  - LEFT ATRIAL DILATATION [None]
  - ATRIOVENTRICULAR BLOCK FIRST DEGREE [None]
  - ARRHYTHMIA [None]
  - HYPOTENSION [None]
  - DELIRIUM [None]
  - CARDIAC FAILURE CONGESTIVE [None]
  - MULTIPLE INJURIES [None]
  - ASCITES [None]
  - QRS AXIS ABNORMAL [None]
  - ELECTROCARDIOGRAM REPOLARISATION ABNORMALITY [None]
  - BLOOD ALKALINE PHOSPHATASE INCREASED [None]
  - AORTIC VALVE INCOMPETENCE [None]
  - IRON BINDING CAPACITY TOTAL DECREASED [None]
  - LIVER DISORDER [None]
  - PYREXIA [None]
  - URINARY TRACT INFECTION [None]
  - GOUT [None]
  - POLLAKIURIA [None]
  - NODAL RHYTHM [None]
  - BRADYCARDIA [None]
  - CONDUCTION DISORDER [None]
  - BUNDLE BRANCH BLOCK RIGHT [None]
  - ACUTE PRERENAL FAILURE [None]
  - C-REACTIVE PROTEIN INCREASED [None]
  - HAEMATOMA [None]
  - PNEUMONIA ASPIRATION [None]
  - PAIN [None]
  - CARDIO-RESPIRATORY ARREST [None]
  - TREATMENT NONCOMPLIANCE [None]
  - PLEURAL EFFUSION [None]
  - HEART INJURY [None]
  - PROSTATIC MASS [None]
  - CHRONIC OBSTRUCTIVE PULMONARY DISEASE [None]
  - ACUTE MYOCARDIAL INFARCTION [None]
  - DIARRHOEA [None]
  - REFUSAL OF TREATMENT BY PATIENT [None]
  - BUNDLE BRANCH BLOCK LEFT [None]
  - TACHYCARDIA [None]
  - GALLOP RHYTHM PRESENT [None]
  - GASTROINTESTINAL HAEMORRHAGE [None]
  - CENTRAL OBESITY [None]
  - INFLAMMATION [None]
  - RENAL ATROPHY [None]
  - URETERIC STENOSIS [None]
